FAERS Safety Report 17304122 (Version 1)
Quarter: 2020Q1

REPORT INFORMATION
  Report Type: Report from Study
  Country: DE (occurrence: DE)
  Receive Date: 20200122
  Receipt Date: 20200122
  Transmission Date: 20200409
  Serious: Yes (Death, Hospitalization)
  Sender: FDA-Public Use
  Company Number: DE-EXELIXIS-XL18420026774

PATIENT
  Age: 63 Year
  Sex: Male
  Weight: 107.8 kg

DRUGS (1)
  1. XL184 [Suspect]
     Active Substance: CABOZANTINIB
     Indication: ADRENOCORTICAL CARCINOMA
     Dosage: 60 MG, QD
     Route: 048
     Dates: start: 20191217, end: 20200107

REACTIONS (4)
  - Atrial fibrillation [Fatal]
  - Cerebrovascular accident [Fatal]
  - Cardiac failure [Fatal]
  - Cardiac arrest [Fatal]

NARRATIVE: CASE EVENT DATE: 20200107
